FAERS Safety Report 12047438 (Version 1)
Quarter: 2016Q1

REPORT INFORMATION
  Report Type: Spontaneous
  Country: JP (occurrence: JP)
  Receive Date: 20160209
  Receipt Date: 20160209
  Transmission Date: 20160526
  Serious: Yes (Life-Threatening, Hospitalization)
  Sender: FDA-Public Use
  Company Number: JP-LUPIN PHARMACEUTICALS INC.-2015-03892

PATIENT
  Age: 75 Year
  Sex: Female
  Weight: 51 kg

DRUGS (7)
  1. DONEPEZIL HYDROCHLORIDE OD 5MG [Suspect]
     Active Substance: DONEPEZIL HYDROCHLORIDE
     Indication: PRODUCT USED FOR UNKNOWN INDICATION
     Route: 048
     Dates: start: 20150807, end: 20151027
  2. ALMODIPINE OD 5MG [Concomitant]
     Indication: PRODUCT USED FOR UNKNOWN INDICATION
     Route: 048
  3. URITOS OD 0.1MG [Concomitant]
     Indication: PRODUCT USED FOR UNKNOWN INDICATION
     Route: 048
  4. SENNOSIDE [Concomitant]
     Active Substance: SENNOSIDES
     Indication: PRODUCT USED FOR UNKNOWN INDICATION
     Route: 048
  5. PITAVASTATIN CA OD1MG [Concomitant]
     Indication: PRODUCT USED FOR UNKNOWN INDICATION
     Route: 048
  6. LONASEN [Concomitant]
     Active Substance: BLONANSERIN
     Indication: PRODUCT USED FOR UNKNOWN INDICATION
     Route: 048
     Dates: start: 20151023
  7. QUETIAPINE OD 12.5MG [Concomitant]
     Indication: PRODUCT USED FOR UNKNOWN INDICATION
     Route: 048

REACTIONS (3)
  - Atrioventricular block [Recovered/Resolved with Sequelae]
  - Chest pain [Recovered/Resolved with Sequelae]
  - Bradycardia [Recovered/Resolved with Sequelae]

NARRATIVE: CASE EVENT DATE: 20151026
